FAERS Safety Report 22951324 (Version 5)
Quarter: 2023Q4

REPORT INFORMATION
  Report Type: Report from Study
  Country: US (occurrence: US)
  Receive Date: 20230917
  Receipt Date: 20231015
  Transmission Date: 20240110
  Serious: Yes (Other)
  Sender: FDA-Public Use
  Company Number: US-002147023-NVSC2023US199706

PATIENT
  Sex: Female

DRUGS (3)
  1. SANDOSTATIN LAR DEPOT [Suspect]
     Active Substance: OCTREOTIDE ACETATE
     Indication: Product used for unknown indication
     Dosage: UNK
     Route: 065
  2. SANDOSTATIN LAR DEPOT [Suspect]
     Active Substance: OCTREOTIDE ACETATE
  3. SANDOSTATIN LAR DEPOT [Suspect]
     Active Substance: OCTREOTIDE ACETATE

REACTIONS (9)
  - Neuropathy peripheral [Unknown]
  - Peripheral swelling [Unknown]
  - Eye irritation [Unknown]
  - Pain [Unknown]
  - Feeling abnormal [Unknown]
  - Incontinence [Unknown]
  - Fall [Unknown]
  - Musculoskeletal stiffness [Unknown]
  - Headache [Unknown]
